FAERS Safety Report 11874749 (Version 1)
Quarter: 2015Q4

REPORT INFORMATION
  Report Type: Report from Study
  Country: TW (occurrence: TW)
  Receive Date: 20151229
  Receipt Date: 20151229
  Transmission Date: 20160305
  Serious: Yes (Other)
  Sender: FDA-Public Use
  Company Number: TW-ROCHE-685033

PATIENT

DRUGS (2)
  1. PEG-INTERFERON ALFA 2A [Suspect]
     Active Substance: PEGINTERFERON ALFA-2A
     Indication: HEPATITIS C
     Route: 065
  2. RIBAVIRIN. [Suspect]
     Active Substance: RIBAVIRIN
     Indication: HEPATITIS C
     Dosage: FREQUENCY: DAILY.
     Route: 065

REACTIONS (21)
  - Ascites [Unknown]
  - Depression [Unknown]
  - Neutropenia [Unknown]
  - Fatigue [Unknown]
  - Nausea [Unknown]
  - Aphthous ulcer [Unknown]
  - Pneumonia [Unknown]
  - Alopecia [Unknown]
  - Cough [Unknown]
  - Hepatocellular carcinoma [Unknown]
  - Insomnia [Unknown]
  - Dermatitis [Unknown]
  - Decreased appetite [Unknown]
  - Pyrexia [Unknown]
  - Headache [Unknown]
  - Liver abscess [Unknown]
  - Dyspepsia [Unknown]
  - Thrombocytopenia [Unknown]
  - Myalgia [Unknown]
  - Diarrhoea [Unknown]
  - Anaemia [Unknown]
